APPROVED DRUG PRODUCT: LORATADINE
Active Ingredient: LORATADINE
Strength: 1MG/ML
Dosage Form/Route: SYRUP;ORAL
Application: A210409 | Product #001
Applicant: HETERO LABS LTD UNIT III
Approved: May 7, 2021 | RLD: No | RS: No | Type: OTC